FAERS Safety Report 24433126 (Version 1)
Quarter: 2024Q4

REPORT INFORMATION
  Report Type: Spontaneous
  Country: BE (occurrence: BE)
  Receive Date: 20241014
  Receipt Date: 20241014
  Transmission Date: 20250115
  Serious: Yes (Other)
  Sender: MYLAN
  Company Number: BE-BIOVITRUM-2024-BE-012519

PATIENT
  Sex: Female

DRUGS (5)
  1. METHOTREXATE [Suspect]
     Active Substance: METHOTREXATE
     Indication: Mevalonate kinase deficiency
     Dosage: 15 MILLIGRAM/SQ. METER, QW (WEEKLY)
     Route: 065
  2. ADALIMUMAB [Suspect]
     Active Substance: ADALIMUMAB
     Indication: Mevalonate kinase deficiency
     Dosage: 40 MILLIGRAM (2 WEEKS)
     Route: 065
  3. ADALIMUMAB [Suspect]
     Active Substance: ADALIMUMAB
     Dosage: 40 MILLIGRAM (3 WEEKS)
     Route: 065
  4. ANAKINRA [Suspect]
     Active Substance: ANAKINRA
     Indication: Mevalonate kinase deficiency
     Dosage: 8 MILLIGRAM/KILOGRAM, QD (PER DAY)
     Route: 065
  5. ANAKINRA [Suspect]
     Active Substance: ANAKINRA
     Dosage: UP TO 5 MG/KG/D
     Route: 065

REACTIONS (3)
  - Pneumonia [Recovered/Resolved]
  - Device related infection [Recovered/Resolved]
  - Off label use [Recovered/Resolved]
